FAERS Safety Report 12388261 (Version 1)
Quarter: 2016Q2

REPORT INFORMATION
  Report Type: Report from Study
  Country: US (occurrence: US)
  Receive Date: 20160520
  Receipt Date: 20160520
  Transmission Date: 20160815
  Serious: Yes (Other)
  Sender: FDA-Public Use
  Company Number: US-AMGEN-USASL2016009054

PATIENT
  Age: 75 Year
  Sex: Female

DRUGS (1)
  1. PROLIA [Suspect]
     Active Substance: DENOSUMAB
     Indication: OSTEOPOROSIS
     Dosage: UNK
     Route: 065
     Dates: start: 201511

REACTIONS (17)
  - Back pain [Unknown]
  - Lower limb fracture [Unknown]
  - Mood swings [Unknown]
  - Skin disorder [Unknown]
  - Feeling abnormal [Unknown]
  - Alopecia [Unknown]
  - Pain in extremity [Unknown]
  - Adverse drug reaction [Unknown]
  - Nausea [Unknown]
  - Pain in jaw [Unknown]
  - Hypoaesthesia [Unknown]
  - Pruritus [Recovering/Resolving]
  - Asthenia [Unknown]
  - Pain [Unknown]
  - Foot fracture [Unknown]
  - Rash macular [Unknown]
  - Poor quality sleep [Unknown]

NARRATIVE: CASE EVENT DATE: 2015
